FAERS Safety Report 8839904 (Version 1)
Quarter: 2012Q4

REPORT INFORMATION
  Report Type: Spontaneous
  Country: FR (occurrence: None)
  Receive Date: 20121011
  Receipt Date: 20121011
  Transmission Date: 20130627
  Serious: Yes (Hospitalization, Other)
  Sender: FDA-Public Use
  Company Number: 2012000214

PATIENT
  Age: 83 Year
  Sex: Female

DRUGS (10)
  1. ACEON (PERINDOPRIL ERBUMINE) TABLET [Suspect]
     Indication: PRODUCT USED FOR UNKNOWN INDICATION
     Route: 048
     Dates: end: 20120808
  2. LASILIX [Suspect]
     Indication: PRODUCT USED FOR UNKNOWN INDICATION
     Route: 048
     Dates: end: 20120808
  3. LANTUS (INSULIN GLARGINE) [Concomitant]
  4. HEMIGOXINE (DIGOXIN) [Concomitant]
  5. COUMADINE (WARFARIN SODIUM) [Concomitant]
  6. ALDACTONE (SPIRONOLACTONE) [Concomitant]
  7. GLUCOPHAGE (METFORMIN HYDROCHLORIDE) [Concomitant]
  8. INEXIUM (ESOMEPRAZOLE MAGNESIUM) [Concomitant]
  9. EFFERALGAN (PARACETAMOL) [Concomitant]
  10. LAMALINE (ATROPA BELLADONNA EXTRACT, CAFFEINE, PAPAVER SOMNIFERUM TINCTURE, PARACETAMOL) [Concomitant]

REACTIONS (7)
  - Syncope [None]
  - International normalised ratio increased [None]
  - Cognitive disorder [None]
  - Renal failure acute [None]
  - Condition aggravated [None]
  - Hyperkalaemia [None]
  - Cardioactive drug level above therapeutic [None]
